FAERS Safety Report 6132363-3 (Version None)
Quarter: 2009Q1

REPORT INFORMATION
  Report Type: 
  Country: None (occurrence: None)
  Receive Date: 20090324
  Receipt Date: 20090317
  Transmission Date: 20090719
  Serious: Yes (Hospitalization)
  Sender: FDA-Public Use
  Company Number: 230152K09BRA

PATIENT
  Age: 29 Year
  Sex: Male

DRUGS (1)
  1. REBIF [Suspect]
     Dosage: 44 MCG,. 3 IN 1 WEEKS
     Dates: start: 20070113

REACTIONS (3)
  - CONVULSION [None]
  - MULTIPLE SCLEROSIS RELAPSE [None]
  - SYNCOPE [None]
